FAERS Safety Report 5754993-0 (Version None)
Quarter: 2008Q2

REPORT INFORMATION
  Report Type: 
  Country: None (occurrence: None)
  Receive Date: 20080529
  Receipt Date: 20080529
  Transmission Date: 20081010
  Serious: No
  Sender: FDA-Public Use
  Company Number: None

PATIENT
  Sex: Female
  Weight: 68.0396 kg

DRUGS (1)
  1. CYCLOSPORINE [Suspect]
     Indication: RENAL TRANSPLANT
     Dosage: 100MG 2X AM+PM  PO
     Route: 048
     Dates: start: 20070901, end: 20071015

REACTIONS (2)
  - PALPITATIONS [None]
  - PHARMACEUTICAL PRODUCT COMPLAINT [None]
